FAERS Safety Report 7812081-3 (Version None)
Quarter: 2011Q4

REPORT INFORMATION
  Report Type: 
  Country: None (occurrence: None)
  Receive Date: 20111013
  Receipt Date: 20111004
  Transmission Date: 20120403
  Serious: Yes (Other)
  Sender: FDA-Public Use
  Company Number: US-JNJFOC-20111002837

PATIENT
  Sex: Male
  Weight: 73.94 kg

DRUGS (13)
  1. GENTAMICIN [Concomitant]
     Indication: SINUSITIS
     Route: 045
  2. PRILOSEC [Concomitant]
     Indication: GASTROINTESTINAL DISORDER
     Route: 048
     Dates: start: 20090101
  3. DENOSUMAB [Concomitant]
     Indication: NUTRITIONAL SUPPORT
     Route: 050
     Dates: start: 20110601
  4. LOVENOX [Concomitant]
     Indication: THROMBOSIS
     Route: 050
     Dates: start: 20080101
  5. PREDNISONE [Concomitant]
     Indication: PROSTATE CANCER
     Route: 048
     Dates: start: 20110421
  6. SYNTHROID [Concomitant]
     Indication: THYROID DISORDER
     Route: 065
  7. SENNA [Concomitant]
     Indication: CONSTIPATION
     Route: 048
     Dates: start: 20110501
  8. FENTANYL [Concomitant]
     Indication: BACK PAIN
     Route: 062
     Dates: start: 20110101
  9. ZOLOFT [Concomitant]
     Indication: DEPRESSION
     Route: 048
     Dates: start: 20080101
  10. OXYCONTIN [Concomitant]
     Indication: BACK PAIN
     Route: 048
     Dates: start: 20110101
  11. MIRALAX [Concomitant]
     Indication: CONSTIPATION
     Route: 048
     Dates: start: 20020101
  12. COLACE [Concomitant]
     Indication: CONSTIPATION
     Route: 048
     Dates: start: 20110501
  13. ZYTIGA [Suspect]
     Indication: PROSTATE CANCER
     Route: 048
     Dates: start: 20110421

REACTIONS (5)
  - DIVERTICULITIS [None]
  - ENTEROVESICAL FISTULA [None]
  - PROSTATIC SPECIFIC ANTIGEN INCREASED [None]
  - INSOMNIA [None]
  - BREAKTHROUGH PAIN [None]
